FAERS Safety Report 7834310-2 (Version None)
Quarter: 2011Q4

REPORT INFORMATION
  Report Type: 
  Country: None (occurrence: None)
  Receive Date: 20111024
  Receipt Date: 20111010
  Transmission Date: 20120403
  Serious: Yes (Other)
  Sender: FDA-Public Use
  Company Number: PHEH2011US06381

PATIENT
  Sex: Female

DRUGS (2)
  1. CLONAZEPAM [Concomitant]
     Route: 065
  2. AFINITOR [Suspect]
     Indication: TUBEROUS SCLEROSIS
     Dosage: 2.5 MG, DAILY
     Route: 048
     Dates: start: 20110916

REACTIONS (2)
  - CONVULSION [None]
  - ABNORMAL BEHAVIOUR [None]
